FAERS Safety Report 6604422-X (Version None)
Quarter: 2010Q1

REPORT INFORMATION
  Report Type: 
  Country: None (occurrence: None)
  Receive Date: 20100226
  Receipt Date: 20090929
  Transmission Date: 20100710
  Serious: No
  Sender: FDA-Public Use
  Company Number: A0809553A

PATIENT
  Age: 37 Year
  Sex: Female

DRUGS (4)
  1. LAMOTRIGINE [Suspect]
     Indication: BIPOLAR DISORDER
     Dosage: 100MG PER DAY
     Route: 048
     Dates: start: 20090908
  2. EFFEXOR [Concomitant]
  3. LASIX [Concomitant]
  4. LISINOPRIL [Concomitant]

REACTIONS (3)
  - BLISTER [None]
  - PRURITUS [None]
  - RASH [None]
